FAERS Safety Report 22533827 (Version 2)
Quarter: 2023Q2

REPORT INFORMATION
  Report Type: Spontaneous
  Country: CN (occurrence: None)
  Receive Date: 20230608
  Receipt Date: 20230614
  Transmission Date: 20230722
  Serious: Yes (Other)
  Sender: FDA-Public Use
  Company Number: 2023A129205

PATIENT
  Age: 53 Year
  Sex: Female

DRUGS (1)
  1. IMFINZI [Suspect]
     Active Substance: DURVALUMAB
     Indication: Lung neoplasm malignant
     Dosage: TWO VIALS OF IMFINZI WERE USED FOR EACH TIME, FOUR TIMES EVERY CYCLE
     Route: 042
     Dates: end: 20230102

REACTIONS (1)
  - Malignant neoplasm progression [Unknown]
